FAERS Safety Report 6757938-X (Version None)
Quarter: 2010Q2

REPORT INFORMATION
  Report Type: 
  Country: None (occurrence: None)
  Receive Date: 20100607
  Receipt Date: 20100505
  Transmission Date: 20101027
  Serious: No
  Sender: FDA-Public Use
  Company Number: US-BAYER-201022600NA

PATIENT
  Age: 42 Year
  Sex: Female

DRUGS (1)
  1. EOVIST [Suspect]
     Indication: NUCLEAR MAGNETIC RESONANCE IMAGING
     Dosage: TOTAL DAILY DOSE: 7 ML
     Route: 042
     Dates: start: 20100319, end: 20100319

REACTIONS (2)
  - NAUSEA [None]
  - VOMITING [None]
